FAERS Safety Report 25486990 (Version 1)
Quarter: 2025Q2

REPORT INFORMATION
  Report Type: Report from Study
  Country: CA (occurrence: CA)
  Receive Date: 20250627
  Receipt Date: 20250627
  Transmission Date: 20250717
  Serious: Yes (Other)
  Sender: ABBVIE
  Company Number: CA-ABBVIE-6345225

PATIENT
  Sex: Male

DRUGS (2)
  1. LUPRON [Suspect]
     Active Substance: LEUPROLIDE ACETATE
     Indication: Prostate cancer
     Dosage: PRE-FILLED SYRINGE
     Route: 030
     Dates: start: 20240813, end: 20250205
  2. ERLEADA [Suspect]
     Active Substance: APALUTAMIDE
     Indication: Product used for unknown indication
     Route: 065
     Dates: start: 2025

REACTIONS (5)
  - Neoplasm malignant [Unknown]
  - Liver disorder [Unknown]
  - Renal disorder [Unknown]
  - Cardiac disorder [Unknown]
  - Hot flush [Recovered/Resolved]
